FAERS Safety Report 25306643 (Version 3)
Quarter: 2025Q2

REPORT INFORMATION
  Report Type: Report from Study
  Country: US (occurrence: US)
  Receive Date: 20250513
  Receipt Date: 20250623
  Transmission Date: 20250717
  Serious: Yes (Other)
  Sender: JOHNSON AND JOHNSON
  Company Number: US-JNJFOC-20250512255

PATIENT
  Age: 62 Year
  Sex: Female

DRUGS (1)
  1. SIMPONI [Suspect]
     Active Substance: GOLIMUMAB
     Indication: Psoriatic arthropathy
     Route: 058

REACTIONS (6)
  - Psoriatic arthropathy [Unknown]
  - Inappropriate schedule of product administration [Unknown]
  - Blood cholesterol increased [Unknown]
  - Nasopharyngitis [Unknown]
  - Tinnitus [Not Recovered/Not Resolved]
  - Drug ineffective [Unknown]
